FAERS Safety Report 20653473 (Version 13)
Quarter: 2024Q1

REPORT INFORMATION
  Report Type: Report from Study
  Country: BR (occurrence: BR)
  Receive Date: 20220330
  Receipt Date: 20240129
  Transmission Date: 20240409
  Serious: Yes (Hospitalization, Other)
  Sender: FDA-Public Use
  Company Number: BR-TAKEDA-2022TUS020052

PATIENT
  Age: 12 Year
  Sex: Male
  Weight: 39 kg

DRUGS (8)
  1. HEMO-8R [Suspect]
     Active Substance: ANTIHEMOPHILIC FACTOR, HUMAN RECOMBINANT
     Indication: Factor VIII deficiency
     Dosage: UNK
     Route: 042
     Dates: start: 20160428
  2. IBUPROFEN [Concomitant]
     Active Substance: IBUPROFEN
     Indication: Fracture
     Dosage: 40 GTT DROPS, QD
     Route: 065
     Dates: start: 20170107, end: 20170108
  3. IBUPROFEN [Concomitant]
     Active Substance: IBUPROFEN
     Indication: Pain
     Dosage: 300 MILLIGRAM, TID
     Route: 065
     Dates: start: 20190922, end: 20190929
  4. IBUPROFEN [Concomitant]
     Active Substance: IBUPROFEN
     Indication: Pain in extremity
  5. ACETAMINOPHEN [Concomitant]
     Active Substance: ACETAMINOPHEN
     Indication: Fracture
     Dosage: 500 MILLIGRAM, QD
     Route: 065
     Dates: start: 20190922, end: 20190924
  6. TRANEXAMIC ACID [Concomitant]
     Active Substance: TRANEXAMIC ACID
     Indication: Haematemesis
     Dosage: 250 MILLIGRAM, BID
     Route: 065
     Dates: start: 20180122, end: 20180122
  7. BROMOPRIDE [Concomitant]
     Active Substance: BROMOPRIDE
     Indication: Haematemesis
     Dosage: 10 MILLIGRAM, QD
     Route: 065
     Dates: start: 20180122, end: 20180122
  8. OMEPRAZOLE [Concomitant]
     Active Substance: OMEPRAZOLE
     Indication: Haematemesis
     Dosage: 40 MILLIGRAM, QD
     Route: 065
     Dates: start: 20180122, end: 20180124

REACTIONS (4)
  - Crohn^s disease [Recovering/Resolving]
  - Abdominal pain [Recovered/Resolved]
  - Vomiting [Recovered/Resolved]
  - Anaemia [Recovered/Resolved]

NARRATIVE: CASE EVENT DATE: 20220309
